FAERS Safety Report 9357537 (Version 1)
Quarter: 2013Q2

REPORT INFORMATION
  Report Type: Report from Study
  Country: RO (occurrence: RO)
  Receive Date: 20130620
  Receipt Date: 20130620
  Transmission Date: 20140414
  Serious: Yes (Death, Life-Threatening, Hospitalization)
  Sender: FDA-Public Use
  Company Number: PHHO2011RO08153

PATIENT
  Age: 81 Year
  Sex: Female
  Weight: 53 kg

DRUGS (14)
  1. BLINDED ALISKIREN [Suspect]
     Dosage: CODE NOT BROKEN
     Route: 048
     Dates: start: 20100706, end: 20110422
  2. BLINDED ENALAPRIL [Suspect]
     Dosage: CODE NOT BROKEN
     Route: 048
     Dates: start: 20100706, end: 20110422
  3. BLINDED NO TREATMENT RECEIVED [Suspect]
     Dosage: CODE NOT BROKEN
     Route: 048
     Dates: start: 20100706, end: 20110422
  4. METOPROLOL [Concomitant]
     Indication: CARDIAC FAILURE CONGESTIVE
     Dosage: 100 MG, BID
  5. METOPROLOL [Concomitant]
     Dosage: 50 MG, BID
     Dates: start: 20110423
  6. METOPROLOL [Concomitant]
     Dosage: 100 MG, BID
     Dates: end: 20130101
  7. FUROSEMID [Concomitant]
     Indication: CARDIAC FAILURE CONGESTIVE
     Dosage: 20 MG, QD
     Dates: start: 201002
  8. FUROSEMID [Concomitant]
     Dosage: 40 MG, QD
     Route: 048
     Dates: start: 20110423, end: 20130101
  9. SPIRONOLACTONE [Concomitant]
     Indication: CARDIAC FAILURE CONGESTIVE
     Dosage: 100 MG, QD
     Dates: start: 20100524
  10. SPIRONOLACTONE [Concomitant]
     Dosage: 50 MG, TID
     Route: 048
     Dates: start: 20110423, end: 20130101
  11. DIGOXIN [Concomitant]
     Indication: CARDIAC FAILURE CONGESTIVE
     Dosage: 0.2 MG, QD
  12. DIGOXIN [Concomitant]
     Dosage: 0.25 MG, QD
     Route: 048
  13. CLOPIDOGREL [Concomitant]
     Indication: MYOCARDIAL ISCHAEMIA
     Dosage: 70 MG, QD
     Dates: start: 2009
  14. CLOPIDOGREL [Concomitant]
     Indication: PROPHYLAXIS
     Dosage: 75 MG, QD
     Route: 048

REACTIONS (2)
  - Cardiac death [Fatal]
  - Cardiac failure [Recovering/Resolving]
